FAERS Safety Report 5873727-2 (Version None)
Quarter: 2008Q3

REPORT INFORMATION
  Report Type: 
  Country: None (occurrence: None)
  Receive Date: 20080908
  Receipt Date: 20080825
  Transmission Date: 20090109
  Serious: Yes (Death, Hospitalization)
  Sender: FDA-Public Use
  Company Number: US-BAYER-200831955NA

PATIENT
  Age: 78 Year
  Sex: Male

DRUGS (4)
  1. DACARBAZINE [Suspect]
     Indication: MALIGNANT MELANOMA
     Dates: start: 20070809
  2. DACARBAZINE [Suspect]
     Dates: start: 20080103, end: 20080103
  3. IPILIMUMAB VS PLACEBO [Suspect]
     Indication: MALIGNANT MELANOMA
     Route: 042
     Dates: start: 20070809
  4. IPILIMUMAB VS PLACEBO [Suspect]
     Dosage: AS USED: 140 ML  UNIT DOSE: 10 MG/KG
     Route: 042
     Dates: start: 20080717, end: 20080717

REACTIONS (3)
  - CEREBRAL ISCHAEMIA [None]
  - PNEUMONIA ASPIRATION [None]
  - UPPER GASTROINTESTINAL HAEMORRHAGE [None]
